FAERS Safety Report 12201008 (Version 1)
Quarter: 2016Q1

REPORT INFORMATION
  Report Type: Spontaneous
  Country: US (occurrence: US)
  Receive Date: 20160322
  Receipt Date: 20160322
  Transmission Date: 20160526
  Serious: No
  Sender: FDA-Public Use
  Company Number: US-WARNER CHILCOTT, LLC-1049435

PATIENT
  Age: 61 Year
  Sex: Female

DRUGS (7)
  1. ESTRACE [Suspect]
     Active Substance: ESTRADIOL
     Indication: DYSPAREUNIA
     Route: 067
     Dates: start: 20150708, end: 20150715
  2. LITHIUM. [Concomitant]
     Active Substance: LITHIUM
  3. ESTRACE [Suspect]
     Active Substance: ESTRADIOL
     Route: 067
  4. ESTRACE [Suspect]
     Active Substance: ESTRADIOL
     Route: 067
  5. KLONOPIN [Concomitant]
     Active Substance: CLONAZEPAM
  6. DOXEPIN [Concomitant]
     Active Substance: DOXEPIN
  7. SYNTHROID [Concomitant]
     Active Substance: LEVOTHYROXINE SODIUM

REACTIONS (6)
  - Product use issue [Recovered/Resolved]
  - Headache [Recovered/Resolved]
  - Depressed mood [Recovered/Resolved]
  - Drug ineffective [Recovered/Resolved]
  - Nausea [Recovered/Resolved]
  - Weight increased [Recovered/Resolved]

NARRATIVE: CASE EVENT DATE: 20150708
